FAERS Safety Report 19891043 (Version 1)
Quarter: 2021Q3

REPORT INFORMATION
  Report Type: Spontaneous
  Country: US (occurrence: US)
  Receive Date: 20210927
  Receipt Date: 20210927
  Transmission Date: 20211014
  Serious: No
  Sender: FDA-Public Use
  Company Number: US-AMGEN-USASP2021148272

PATIENT
  Age: 58 Year
  Sex: Female
  Weight: 51.25 kg

DRUGS (1)
  1. NEULASTA [Suspect]
     Active Substance: PEGFILGRASTIM
     Indication: PRODUCT USED FOR UNKNOWN INDICATION
     Dosage: UNK
     Route: 065

REACTIONS (3)
  - Infusion site haemorrhage [Recovered/Resolved]
  - Infusion site swelling [Recovering/Resolving]
  - Infusion site discolouration [Unknown]

NARRATIVE: CASE EVENT DATE: 20210922
